FAERS Safety Report 15891110 (Version 1)
Quarter: 2019Q1

REPORT INFORMATION
  Report Type: Spontaneous
  Country: US (occurrence: US)
  Receive Date: 20190130
  Receipt Date: 20190130
  Transmission Date: 20190417
  Serious: No
  Sender: FDA-Public Use
  Company Number: US-ALLERGAN-1810010US

PATIENT

DRUGS (1)
  1. VIIBRYD [Suspect]
     Active Substance: VILAZODONE HYDROCHLORIDE
     Indication: BORDERLINE PERSONALITY DISORDER
     Dosage: UNK
     Route: 065

REACTIONS (1)
  - Off label use [Unknown]
